FAERS Safety Report 16335956 (Version 2)
Quarter: 2019Q2

REPORT INFORMATION
  Report Type: Spontaneous
  Country: FR (occurrence: FR)
  Receive Date: 20190521
  Receipt Date: 20190624
  Transmission Date: 20190711
  Serious: Yes (Hospitalization)
  Sender: FDA-Public Use
  Company Number: FR-ABBVIE-19K-056-2788183-00

PATIENT
  Age: 51 Year
  Sex: Male

DRUGS (1)
  1. MAVIRET [Suspect]
     Active Substance: GLECAPREVIR\PIBRENTASVIR
     Indication: PRODUCT USED FOR UNKNOWN INDICATION
     Dosage: PLANNED FOR 12 WEEKS
     Route: 048
     Dates: start: 201903

REACTIONS (3)
  - Hepatic failure [Not Recovered/Not Resolved]
  - Hepatocellular carcinoma [Unknown]
  - Hepatorenal syndrome [Not Recovered/Not Resolved]

NARRATIVE: CASE EVENT DATE: 201905
